FAERS Safety Report 7817019 (Version 3)
Quarter: 2014Q1

REPORT INFORMATION
  Report Type: Report from Study
  Country: DE (occurrence: DE)
  Receive Date: 20110217
  Receipt Date: 20140117
  Transmission Date: 20141002
  Serious: Yes (Other)
  Sender: FDA-Public Use
  Company Number: DE-JNJFOC-20110201922

PATIENT
  Age: 47 Year
  Sex: Female
  Weight: 53.1 kg

DRUGS (4)
  1. USTEKINUMAB [Suspect]
     Indication: PSORIASIS
     Route: 058
     Dates: start: 20100201, end: 20100823
  2. MTX [Concomitant]
     Indication: PSORIASIS
     Route: 058
     Dates: start: 20091123, end: 20100823
  3. FOLSAN [Concomitant]
     Route: 048
     Dates: start: 20091123, end: 20100823
  4. TORASEMID [Concomitant]
     Dates: start: 20100213

REACTIONS (1)
  - Cervix carcinoma stage 0 [Recovered/Resolved]
